FAERS Safety Report 10504669 (Version 2)
Quarter: 2015Q1

REPORT INFORMATION
  Report Type: Report from Study
  Country: CM (occurrence: CM)
  Receive Date: 20141008
  Receipt Date: 20150304
  Transmission Date: 20150720
  Serious: Yes (Death, Other)
  Sender: FDA-Public Use
  Company Number: CM-JNJFOC-20141002389

PATIENT
  Sex: Male
  Weight: 2.6 kg

DRUGS (4)
  1. ABACAVIR [Suspect]
     Active Substance: ABACAVIR
     Indication: HIV INFECTION
     Route: 064
     Dates: start: 20111216
  2. RITONAVIR. [Suspect]
     Active Substance: RITONAVIR
     Indication: HIV INFECTION
     Route: 064
     Dates: start: 20111216
  3. TMC114 [Suspect]
     Active Substance: DARUNAVIR
     Indication: HIV INFECTION
     Route: 064
     Dates: start: 20111216
  4. DIDANOSINE. [Suspect]
     Active Substance: DIDANOSINE
     Indication: HIV INFECTION
     Route: 064
     Dates: start: 20111216

REACTIONS (3)
  - HIV infection [Fatal]
  - Infection [Unknown]
  - Foetal exposure during pregnancy [Recovered/Resolved]
